FAERS Safety Report 10215895 (Version 1)
Quarter: 2014Q2

REPORT INFORMATION
  Report Type: Spontaneous
  Country: US (occurrence: None)
  Receive Date: 20140603
  Receipt Date: 20140603
  Transmission Date: 20141212
  Serious: Yes (Hospitalization)
  Sender: FDA-Public Use
  Company Number: None

PATIENT
  Age: 28 Year
  Sex: Male
  Weight: 89.2 kg

DRUGS (1)
  1. DIVALPROEX [Suspect]
     Route: 048
     Dates: start: 20140122, end: 20140131

REACTIONS (1)
  - Hyperammonaemia [None]
